FAERS Safety Report 7786814-9 (Version None)
Quarter: 2011Q3

REPORT INFORMATION
  Report Type: 
  Country: None (occurrence: None)
  Receive Date: 20110929
  Receipt Date: 20110923
  Transmission Date: 20111222
  Serious: Yes (Death, Hospitalization, Other)
  Sender: FDA-Public Use
  Company Number: MX-SANOFI-AVENTIS-2011SA062359

PATIENT
  Age: 57 Year
  Sex: Female

DRUGS (2)
  1. INSULIN GLARGINE [Suspect]
     Indication: TYPE 2 DIABETES MELLITUS
     Route: 058
     Dates: start: 20040101, end: 20070801
  2. ANTIHYPERTENSIVES [Concomitant]
     Dates: end: 20070801

REACTIONS (2)
  - MYOCARDIAL INFARCTION [None]
  - PNEUMONIA BACTERIAL [None]
